FAERS Safety Report 15413985 (Version 1)
Quarter: 2018Q3

REPORT INFORMATION
  Report Type: Spontaneous
  Country: US (occurrence: US)
  Receive Date: 20180921
  Receipt Date: 20180921
  Transmission Date: 20181010
  Serious: No
  Sender: FDA-Public Use
  Company Number: US-NOVOPROD-598423

PATIENT
  Age: 74 Year
  Sex: Male

DRUGS (4)
  1. VICTOZA [Suspect]
     Active Substance: LIRAGLUTIDE
     Indication: TYPE 2 DIABETES MELLITUS
     Dosage: FLOW CHECK
     Route: 058
     Dates: start: 20180411, end: 20180425
  2. VICTOZA [Suspect]
     Active Substance: LIRAGLUTIDE
     Dosage: 1.2 MG, UNK
     Route: 058
     Dates: start: 20180510, end: 20180518
  3. VICTOZA [Suspect]
     Active Substance: LIRAGLUTIDE
     Dosage: 1.8 MG, UNK
     Route: 058
     Dates: start: 20180519
  4. VICTOZA [Suspect]
     Active Substance: LIRAGLUTIDE
     Dosage: 0.6 MG, UNK
     Route: 058
     Dates: start: 20180426, end: 20180509

REACTIONS (5)
  - Decreased appetite [Unknown]
  - Dry mouth [Unknown]
  - Fatigue [Unknown]
  - Incorrect dose administered [Recovered/Resolved]
  - Nausea [Recovering/Resolving]

NARRATIVE: CASE EVENT DATE: 20180411
